FAERS Safety Report 4668756-0 (Version None)
Quarter: 2005Q2

REPORT INFORMATION
  Report Type: 
  Country: None (occurrence: None)
  Receive Date: 20050519
  Receipt Date: 20050513
  Transmission Date: 20051028
  Serious: Yes (Other)
  Sender: FDA-Public Use
  Company Number: 200510279BVD

PATIENT
  Age: 42 Year
  Sex: Female
  Weight: 71 kg

DRUGS (11)
  1. CIPROFLOXACIN HCL [Suspect]
     Indication: PNEUMONIA
     Dosage: 400 MG, BID, INTRAVENOUS
     Route: 042
     Dates: start: 20050313
  2. ROCEPHIN [Concomitant]
  3. ACTRAPID [Concomitant]
  4. ANTRA [Concomitant]
  5. ACC [Concomitant]
  6. HYDROCORTISON [Concomitant]
  7. MUCOSOLVAN [Concomitant]
  8. DORMICUM [Concomitant]
  9. FENTANYL [Concomitant]
  10. KALIUM [Concomitant]
  11. SOLUTIONS FOR PARENTERAL NUTRITION [Concomitant]

REACTIONS (10)
  - ARRHYTHMIA [None]
  - BUNDLE BRANCH BLOCK RIGHT [None]
  - EJECTION FRACTION DECREASED [None]
  - ELECTROCARDIOGRAM QRS COMPLEX PROLONGED [None]
  - EXTRASYSTOLES [None]
  - PERICARDIAL EFFUSION [None]
  - PLEURAL EFFUSION [None]
  - TACHYCARDIA [None]
  - VENTRICULAR DYSFUNCTION [None]
  - VENTRICULAR TACHYCARDIA [None]
